FAERS Safety Report 14710208 (Version 1)
Quarter: 2018Q2

REPORT INFORMATION
  Report Type: Spontaneous
  Country: US (occurrence: US)
  Receive Date: 20180403
  Receipt Date: 20180403
  Transmission Date: 20180711
  Serious: No
  Sender: FDA-Public Use
  Company Number: US-ROCHE-1919018

PATIENT
  Age: 90 Year
  Sex: Male

DRUGS (12)
  1. SIMVASTATIN. [Concomitant]
     Active Substance: SIMVASTATIN
     Route: 065
  2. DIGOXIN. [Concomitant]
     Active Substance: DIGOXIN
     Route: 065
  3. ELIQUIS [Concomitant]
     Active Substance: APIXABAN
     Route: 065
  4. ERIVEDGE [Suspect]
     Active Substance: VISMODEGIB
     Route: 048
     Dates: start: 20161221, end: 20170414
  5. LEVOTHYROXIN [Concomitant]
     Active Substance: LEVOTHYROXINE
     Route: 065
  6. ASPIRIN. [Concomitant]
     Active Substance: ASPIRIN
     Route: 065
  7. PROPAFENONE. [Concomitant]
     Active Substance: PROPAFENONE
     Route: 065
  8. ERIVEDGE [Suspect]
     Active Substance: VISMODEGIB
     Indication: SKIN CANCER
     Dosage: 1 CAPSULE BY MOUTH ONCE DAILY
     Route: 048
     Dates: start: 20161223
  9. MELATONIN [Concomitant]
     Active Substance: MELATONIN
     Route: 065
  10. OMEPRAZOLE. [Concomitant]
     Active Substance: OMEPRAZOLE
     Route: 065
  11. METOPROLOL. [Concomitant]
     Active Substance: METOPROLOL
     Dosage: ER
     Route: 065
  12. CHONDROITIN + GLUCOSAMINE [Concomitant]
     Route: 065

REACTIONS (7)
  - Asthenia [Unknown]
  - Memory impairment [Unknown]
  - Hallucination, visual [Recovered/Resolved]
  - Muscle spasms [Not Recovered/Not Resolved]
  - Hallucination, auditory [Recovered/Resolved]
  - Dysgeusia [Unknown]
  - Insomnia [Recovered/Resolved]

NARRATIVE: CASE EVENT DATE: 20170301
